FAERS Safety Report 7562670-9 (Version None)
Quarter: 2011Q2

REPORT INFORMATION
  Report Type: 
  Country: None (occurrence: None)
  Receive Date: 20110621
  Receipt Date: 20110621
  Transmission Date: 20111010
  Serious: Yes (Other)
  Sender: FDA-Public Use
  Company Number: None

PATIENT
  Age: 60 Year
  Sex: Male
  Weight: 95.2554 kg

DRUGS (1)
  1. BENZOCAINE [Suspect]

REACTIONS (5)
  - DRUG HYPERSENSITIVITY [None]
  - CHAPPED LIPS [None]
  - PHARYNGEAL OEDEMA [None]
  - LIP BLISTER [None]
  - OROPHARYNGEAL BLISTERING [None]
